FAERS Safety Report 17249532 (Version 7)
Quarter: 2025Q3

REPORT INFORMATION
  Report Type: Report from Study
  Country: CA (occurrence: CA)
  Receive Date: 20200108
  Receipt Date: 20250903
  Transmission Date: 20251021
  Serious: Yes (Hospitalization, Other)
  Sender: TAKEDA
  Company Number: CA-TAKEDA-2018TUS010510

PATIENT
  Sex: Female

DRUGS (26)
  1. VEDOLIZUMAB [Suspect]
     Active Substance: VEDOLIZUMAB
     Indication: Crohn^s disease
  2. VEDOLIZUMAB [Suspect]
     Active Substance: VEDOLIZUMAB
     Dosage: 300 MILLIGRAM, Q6WEEKS
     Dates: start: 20180524
  3. VEDOLIZUMAB [Suspect]
     Active Substance: VEDOLIZUMAB
     Dosage: 300 MILLIGRAM, Q6WEEKS
  4. VEDOLIZUMAB [Suspect]
     Active Substance: VEDOLIZUMAB
     Dosage: 300 MILLIGRAM, Q6WEEKS
  5. VEDOLIZUMAB [Suspect]
     Active Substance: VEDOLIZUMAB
     Dosage: 300 MILLIGRAM, Q6WEEKS
  6. VEDOLIZUMAB [Suspect]
     Active Substance: VEDOLIZUMAB
     Dosage: 300 MILLIGRAM, Q6WEEKS
  7. VEDOLIZUMAB [Suspect]
     Active Substance: VEDOLIZUMAB
     Dosage: 300 MILLIGRAM, Q6WEEKS
  8. VEDOLIZUMAB [Suspect]
     Active Substance: VEDOLIZUMAB
     Dosage: 300 MILLIGRAM, Q6WEEKS
  9. VEDOLIZUMAB [Suspect]
     Active Substance: VEDOLIZUMAB
     Dosage: 300 MILLIGRAM, Q6WEEKS
  10. VEDOLIZUMAB [Suspect]
     Active Substance: VEDOLIZUMAB
     Dosage: 300 MILLIGRAM, Q6WEEKS
  11. VEDOLIZUMAB [Suspect]
     Active Substance: VEDOLIZUMAB
     Dosage: 300 MILLIGRAM, Q6WEEKS
  12. VEDOLIZUMAB [Suspect]
     Active Substance: VEDOLIZUMAB
     Dosage: 300 MILLIGRAM, Q4WEEKS
     Dates: start: 20240704
  13. PANTOPRAZOLE SODIUM [Suspect]
     Active Substance: PANTOPRAZOLE SODIUM
     Indication: Product used for unknown indication
  14. BILASTINE [Concomitant]
     Active Substance: BILASTINE
  15. BENADRYL [Concomitant]
     Active Substance: DIPHENHYDRAMINE HYDROCHLORIDE
  16. CHOLECALCIFEROL [Concomitant]
     Active Substance: CHOLECALCIFEROL
  17. OLMESARTAN [Concomitant]
     Active Substance: OLMESARTAN
  18. OLMESARTAN [Concomitant]
     Active Substance: OLMESARTAN
  19. LOPERAMIDE [Concomitant]
     Active Substance: LOPERAMIDE
  20. AMLODIPINE [Concomitant]
     Active Substance: AMLODIPINE BESYLATE
  21. PROMETRIUM [Concomitant]
     Active Substance: PROGESTERONE
  22. ROSUVASTATIN [Concomitant]
     Active Substance: ROSUVASTATIN
  23. RIZATRIPTAN [Concomitant]
     Active Substance: RIZATRIPTAN
  24. WEGOVY [Concomitant]
     Active Substance: SEMAGLUTIDE
     Dosage: 0.5 MILLIGRAM, 1/WEEK
     Dates: start: 20240801
  25. VITAMIN B12 [Concomitant]
     Active Substance: CYANOCOBALAMIN
  26. VITAMIN D [Concomitant]
     Active Substance: VITAMIN D NOS

REACTIONS (16)
  - Colitis ulcerative [Unknown]
  - Dehydration [Unknown]
  - Crohn^s disease [Recovered/Resolved]
  - Haematochezia [Unknown]
  - Gastroenteritis [Unknown]
  - Infusion site pain [Unknown]
  - General physical health deterioration [Not Recovered/Not Resolved]
  - Frequent bowel movements [Recovered/Resolved]
  - Stress [Recovered/Resolved]
  - Diarrhoea [Recovered/Resolved]
  - Faeces soft [Unknown]
  - Therapeutic reaction time decreased [Unknown]
  - Off label use [Unknown]
  - Dyspepsia [Recovered/Resolved]
  - Constipation [Recovered/Resolved]
  - Fatigue [Not Recovered/Not Resolved]

NARRATIVE: CASE EVENT DATE: 20180101
